FAERS Safety Report 21699746 (Version 10)
Quarter: 2023Q4

REPORT INFORMATION
  Report Type: Spontaneous
  Country: US (occurrence: US)
  Receive Date: 20221208
  Receipt Date: 20231129
  Transmission Date: 20240110
  Serious: Yes (Other)
  Sender: FDA-Public Use
  Company Number: US-PFIZER INC-202200611506

PATIENT
  Age: 75 Year
  Sex: Female

DRUGS (1)
  1. IBRANCE [Suspect]
     Active Substance: PALBOCICLIB
     Indication: Breast cancer female
     Dosage: 100 MG, CYCLIC (DAILY FOR 21 DAYS ON AND 14 DAYS OFF/1 TABLET DAILY FOR 21 DAYS THEN OFF FOR 2 WEEK)
     Route: 048

REACTIONS (3)
  - Neutropenia [Unknown]
  - Back disorder [Unknown]
  - Fall [Unknown]
